FAERS Safety Report 21651128 (Version 1)
Quarter: 2022Q4

REPORT INFORMATION
  Report Type: Report from Study
  Country: US (occurrence: US)
  Receive Date: 20221128
  Receipt Date: 20221128
  Transmission Date: 20230113
  Serious: Yes (Hospitalization, Other)
  Sender: FDA-Public Use
  Company Number: US-ABBVIE-4212334

PATIENT
  Age: 33 Year
  Sex: Male
  Weight: 42.184 kg

DRUGS (5)
  1. CREON [Suspect]
     Active Substance: PANCRELIPASE AMYLASE\PANCRELIPASE LIPASE\PANCRELIPASE PROTEASE
     Indication: Pancreatic cyst
     Dosage: 48000 DOSAGE FORM
     Route: 048
     Dates: start: 20221027, end: 20221115
  2. ZYVOX [Concomitant]
     Active Substance: LINEZOLID
     Indication: Lung abscess
  3. Glargine biocon [Concomitant]
     Indication: Type 1 diabetes mellitus
     Dosage: 28 UNIT
  4. FOLIC ACID [Concomitant]
     Active Substance: FOLIC ACID
     Indication: Supplementation therapy
     Dosage: 1 TABLET
  5. INSULIN NOS [Concomitant]
     Active Substance: INSULIN NOS
     Indication: Type 1 diabetes mellitus

REACTIONS (2)
  - Diabetic ketoacidosis [Recovering/Resolving]
  - Diabetes mellitus inadequate control [Recovering/Resolving]

NARRATIVE: CASE EVENT DATE: 20221027
